FAERS Safety Report 11105678 (Version 4)
Quarter: 2015Q4

REPORT INFORMATION
  Report Type: Report from Study
  Country: US (occurrence: US)
  Receive Date: 20150512
  Receipt Date: 20151006
  Transmission Date: 20160304
  Serious: Yes (Other)
  Sender: FDA-Public Use
  Company Number: US-AMGEN-USASP2015045365

PATIENT
  Age: 40 Year
  Sex: Female
  Weight: 64.4 kg

DRUGS (8)
  1. NAPROXEN. [Concomitant]
     Active Substance: NAPROXEN
     Dosage: UNK
  2. HOMATROPINE/ HYDROCODONE [Concomitant]
     Dosage: UNK
  3. METHOTREXATE [Concomitant]
     Active Substance: METHOTREXATE
     Dosage: UNK
  4. LEVOFLOXIN [Concomitant]
     Active Substance: LEVOFLOXACIN
     Dosage: UNK
  5. PREDNISONE. [Concomitant]
     Active Substance: PREDNISONE
     Dosage: UNK
  6. ARAVA [Concomitant]
     Active Substance: LEFLUNOMIDE
     Dosage: UNK
  7. PLAQUENIL [Concomitant]
     Active Substance: HYDROXYCHLOROQUINE SULFATE
     Dosage: UNK
  8. ENBREL [Suspect]
     Active Substance: ETANERCEPT
     Indication: RHEUMATOID ARTHRITIS
     Dosage: 50 MG, QWK
     Route: 058
     Dates: start: 20150406, end: 20150528

REACTIONS (7)
  - Pneumonia [Recovered/Resolved]
  - Malaise [Unknown]
  - Kidney infection [Recovered/Resolved]
  - Headache [Recovering/Resolving]
  - Myalgia [Recovering/Resolving]
  - Decreased appetite [Recovering/Resolving]
  - Injection site urticaria [Recovered/Resolved]

NARRATIVE: CASE EVENT DATE: 201504
